FAERS Safety Report 22896390 (Version 5)
Quarter: 2024Q1

REPORT INFORMATION
  Report Type: Spontaneous
  Country: US (occurrence: US)
  Receive Date: 20230901
  Receipt Date: 20240223
  Transmission Date: 20240410
  Serious: Yes (Other)
  Sender: FDA-Public Use
  Company Number: US-PFIZER INC-PV202300148574

PATIENT
  Age: 67 Year
  Sex: Female
  Weight: 43.991 kg

DRUGS (5)
  1. IBRANCE [Suspect]
     Active Substance: PALBOCICLIB
     Indication: Breast cancer female
     Dosage: 75 MG
     Route: 048
     Dates: start: 20211118, end: 202210
  2. IBRANCE [Suspect]
     Active Substance: PALBOCICLIB
     Indication: Breast cancer metastatic
     Dosage: 100 MG 21 DAYS DAILY
     Dates: start: 20211118
  3. IBRANCE [Suspect]
     Active Substance: PALBOCICLIB
     Dosage: 75 MG
     Route: 048
     Dates: start: 202307
  4. LETROZOLE [Suspect]
     Active Substance: LETROZOLE
     Indication: Breast cancer metastatic
     Dosage: 2.5 MG DAILY
     Dates: start: 20211118, end: 202210
  5. LETROZOLE [Suspect]
     Active Substance: LETROZOLE
     Dosage: UNK
     Dates: start: 202307

REACTIONS (7)
  - Second primary malignancy [Recovered/Resolved]
  - Squamous cell carcinoma of skin [Recovered/Resolved]
  - Malignant melanoma [Recovered/Resolved]
  - Precancerous skin lesion [Recovered/Resolved]
  - Neoplasm progression [Not Recovered/Not Resolved]
  - Stomatitis [Not Recovered/Not Resolved]
  - Back pain [Recovered/Resolved]

NARRATIVE: CASE EVENT DATE: 20221201
